FAERS Safety Report 4375836-6 (Version None)
Quarter: 2004Q2

REPORT INFORMATION
  Report Type: 
  Country: None (occurrence: None)
  Receive Date: 20040607
  Receipt Date: 20040524
  Transmission Date: 20050107
  Serious: Yes (Hospitalization)
  Sender: FDA-Public Use
  Company Number: M2004-0567

PATIENT
  Age: 63 Year
  Sex: Male

DRUGS (7)
  1. RIFAMPICIN [Suspect]
     Indication: INFECTION
  2. VANCOMYCIN [Suspect]
     Indication: INFECTION
  3. DILTIAZEM [Concomitant]
  4. ATORVASTATIN CALCIUM [Concomitant]
  5. ACETAMINOPHEN [Concomitant]
  6. LISINOPRIL [Concomitant]
  7. TEMAZEPAM [Concomitant]

REACTIONS (5)
  - ACUTE GENERALISED EXANTHEMATOUS PUSTULOSIS [None]
  - DRUG HYPERSENSITIVITY [None]
  - LEUKOPENIA [None]
  - SEPTIC SHOCK [None]
  - SKIN TEST POSITIVE [None]
